FAERS Safety Report 26038860 (Version 1)
Quarter: 2025Q4

REPORT INFORMATION
  Report Type: Spontaneous
  Country: US (occurrence: US)
  Receive Date: 20251113
  Receipt Date: 20251113
  Transmission Date: 20260118
  Serious: No
  Sender: UROGEN PHARMA
  Company Number: US-UROGEN PHARMA LTD.-2025-UGN-000166

PATIENT

DRUGS (1)
  1. ZUSDURI [Suspect]
     Active Substance: MITOMYCIN
     Indication: Product used for unknown indication
     Route: 065

REACTIONS (1)
  - Hypertonic bladder [Unknown]
